FAERS Safety Report 16653759 (Version 1)
Quarter: 2019Q3

REPORT INFORMATION
  Report Type: Spontaneous
  Country: JP (occurrence: JP)
  Receive Date: 20190731
  Receipt Date: 20190731
  Transmission Date: 20191004
  Serious: Yes (Death, Other)
  Sender: FDA-Public Use
  Company Number: JP-PFIZER INC-2019322471

PATIENT

DRUGS (1)
  1. SUTENT [Suspect]
     Active Substance: SUNITINIB MALATE
     Indication: GASTROINTESTINAL STROMAL TUMOUR
     Dosage: 50 MG, CYCLIC (DAILY, TWO-WEEK-ON AND ONE-WEEK-OFF )
     Route: 048
     Dates: start: 201904, end: 2019

REACTIONS (3)
  - Bone marrow failure [Unknown]
  - Skin disorder [Unknown]
  - Gastrointestinal perforation [Fatal]
